FAERS Safety Report 4348536-6 (Version None)
Quarter: 2004Q2

REPORT INFORMATION
  Report Type: 
  Country: None (occurrence: None)
  Receive Date: 20040423
  Receipt Date: 20040407
  Transmission Date: 20050107
  Serious: Yes (Hospitalization, Other)
  Sender: FDA-Public Use
  Company Number: 2004US002070

PATIENT
  Age: 57 Year
  Sex: Male
  Weight: 122.9 kg

DRUGS (9)
  1. ALOXI [Suspect]
     Indication: PROPHYLAXIS OF NAUSEA AND VOMITING
     Dosage: 0.25 MG, SINGLE, INTRAVENOUS
     Route: 042
     Dates: start: 20040113, end: 20040113
  2. DECADRON [Concomitant]
  3. OXALIPLATIN (OXALIPLATIN) [Concomitant]
  4. LEUCOVORIN CALCIUM [Concomitant]
  5. CALCIUM (CALCIUM) [Concomitant]
  6. MAGNESIUM (MAGNESIUM) [Concomitant]
  7. LOVENOX [Concomitant]
  8. PROTONIX [Concomitant]
  9. ZANTAC [Concomitant]

REACTIONS (16)
  - ABDOMINAL DISCOMFORT [None]
  - BURNING SENSATION [None]
  - CONFUSIONAL STATE [None]
  - CONVULSION [None]
  - DIARRHOEA [None]
  - FALL [None]
  - FEELING HOT [None]
  - FLUSHING [None]
  - HEAD INJURY [None]
  - HYPERSENSITIVITY [None]
  - INFUSION RELATED REACTION [None]
  - MALAISE [None]
  - OXYGEN SATURATION DECREASED [None]
  - RED MAN SYNDROME [None]
  - SYNCOPE [None]
  - WHITE BLOOD CELL COUNT DECREASED [None]
